FAERS Safety Report 6186013-0 (Version None)
Quarter: 2009Q2

REPORT INFORMATION
  Report Type: 
  Country: None (occurrence: None)
  Receive Date: 20090507
  Receipt Date: 20090421
  Transmission Date: 20091009
  Serious: Yes (Other)
  Sender: FDA-Public Use
  Company Number: 2009S1002729

PATIENT
  Age: 42 Year
  Sex: Female

DRUGS (3)
  1. PHOSPHOSODA GINGER LEMON [Suspect]
     Indication: COLONOSCOPY
     Dosage: 45 MG;X1;PO
     Route: 048
     Dates: start: 20080819, end: 20080819
  2. ALDACTONE [Concomitant]
  3. TETRACYCLINE [Concomitant]

REACTIONS (4)
  - ANAEMIA [None]
  - HYPERSENSITIVITY [None]
  - NEPHROLITHIASIS [None]
  - RENAL IMPAIRMENT [None]
